FAERS Safety Report 8696616 (Version 3)
Quarter: 2013Q1

REPORT INFORMATION
  Report Type: Spontaneous
  Country: US (occurrence: US)
  Receive Date: 20120801
  Receipt Date: 20130110
  Transmission Date: 20140127
  Serious: Yes (Hospitalization)
  Sender: FDA-Public Use
  Company Number: US-BAYER-2012-074410

PATIENT
  Age: 41 Year
  Sex: Female
  Weight: 70.3 kg

DRUGS (7)
  1. YAZ [Suspect]
     Indication: CONTRACEPTION
     Dosage: UNK
     Dates: start: 200608, end: 200903
  2. METHYLDOPA [Concomitant]
     Indication: PREHYPERTENSION
     Dosage: 250 MG, 2 TIMES A DAY
     Route: 048
  3. VALTREX [Concomitant]
     Dosage: 1000 MG, UNK
  4. METHYLDOPA [Concomitant]
     Dosage: UNK
  5. MELOXICAM [Concomitant]
     Indication: PAIN
     Dosage: 7.5 MG, TWICE A DAY
  6. CYCLOBENZAPRINE HYDROCHLORIDE [Concomitant]
     Indication: PAIN
     Dosage: 15 MG, NIGHTLY
  7. PROTONIX [Concomitant]
     Dosage: 40 MG, DAILY

REACTIONS (10)
  - Pulmonary embolism [None]
  - Pain [None]
  - Dyspnoea [None]
  - Injury [None]
  - Mobility decreased [None]
  - General physical health deterioration [None]
  - Anxiety [None]
  - Emotional distress [None]
  - Pain [None]
  - Mental disorder [None]
